FAERS Safety Report 14147787 (Version 1)
Quarter: 2017Q4

REPORT INFORMATION
  Report Type: Spontaneous
  Country: SE (occurrence: SE)
  Receive Date: 20171031
  Receipt Date: 20171031
  Transmission Date: 20180321
  Serious: Yes (Hospitalization)
  Sender: FDA-Public Use
  Company Number: SE-TEVA-818890ROM

PATIENT
  Age: 77 Year
  Sex: Male

DRUGS (10)
  1. ALVEDON 665 MG MODIFIED RELEASE TABLET [Concomitant]
     Active Substance: ACETAMINOPHEN
  2. ATORVASTATIN [Concomitant]
     Active Substance: ATORVASTATIN
  3. TROMBYL 75 MG TABLETT [Concomitant]
     Active Substance: ASPIRIN
  4. BRILIQUE 90 MG FILM COATED-TABLET [Concomitant]
  5. SELOKENZOC 25 MG DEPOTTABLETT [Concomitant]
  6. TRIOBE  TABLETT [Concomitant]
  7. CIPROFLOXACIN. [Suspect]
     Active Substance: CIPROFLOXACIN
     Indication: PYELONEPHRITIS
     Dosage: 1000 MILLIGRAM DAILY;
     Route: 048
     Dates: start: 20171009, end: 20171009
  8. LOSARTAN. [Concomitant]
     Active Substance: LOSARTAN
  9. NITROLINGUAL 0,4 MG/DOS SUBLINGUALSPRAY [Concomitant]
  10. OMEPRAZOLE. [Concomitant]
     Active Substance: OMEPRAZOLE

REACTIONS (1)
  - Inappropriate antidiuretic hormone secretion [Recovered/Resolved]

NARRATIVE: CASE EVENT DATE: 20171009
